FAERS Safety Report 7400009-X (Version None)
Quarter: 2011Q2

REPORT INFORMATION
  Report Type: 
  Country: None (occurrence: None)
  Receive Date: 20110407
  Receipt Date: 20110325
  Transmission Date: 20111010
  Serious: Yes (Other)
  Sender: FDA-Public Use
  Company Number: PHHY2011CA25239

PATIENT
  Sex: Female

DRUGS (2)
  1. ACLASTA [Suspect]
     Route: 042
     Dates: start: 20110325
  2. ACLASTA [Suspect]
     Indication: OSTEOPOROSIS
     Dosage: 5 MG, UNK
     Route: 042
     Dates: start: 20100112

REACTIONS (4)
  - PAIN [None]
  - FOOT FRACTURE [None]
  - JOINT SWELLING [None]
  - TENDERNESS [None]
